FAERS Safety Report 15620123 (Version 1)
Quarter: 2018Q4

REPORT INFORMATION
  Report Type: Report from Study
  Country: US (occurrence: US)
  Receive Date: 20181115
  Receipt Date: 20181115
  Transmission Date: 20190205
  Serious: Yes (Other)
  Sender: FDA-Public Use
  Company Number: PHEH2018US047968

PATIENT
  Sex: Male

DRUGS (1)
  1. TASIGNA [Suspect]
     Active Substance: NILOTINIB
     Route: 065
     Dates: start: 2014

REACTIONS (3)
  - Fatigue [Unknown]
  - Back pain [Unknown]
  - Neuropathy peripheral [Unknown]
